FAERS Safety Report 10133076 (Version 1)
Quarter: 2014Q2

REPORT INFORMATION
  Report Type: Spontaneous
  Country: US (occurrence: US)
  Receive Date: 20140428
  Receipt Date: 20140428
  Transmission Date: 20141212
  Serious: Yes (Other)
  Sender: FDA-Public Use
  Company Number: US-BRACCO-010074

PATIENT
  Age: 31 Year
  Sex: Male

DRUGS (1)
  1. PROHANCE [Suspect]
     Indication: NUCLEAR MAGNETIC RESONANCE IMAGING BRAIN
     Route: 042
     Dates: start: 20131008, end: 20131008

REACTIONS (2)
  - Hypersensitivity [Recovered/Resolved]
  - Convulsion [Recovered/Resolved]
